FAERS Safety Report 9327654 (Version 1)
Quarter: 2013Q2

REPORT INFORMATION
  Report Type: Spontaneous
  Country: US (occurrence: US)
  Receive Date: 20130604
  Receipt Date: 20130604
  Transmission Date: 20140414
  Serious: No
  Sender: FDA-Public Use
  Company Number: US-PFIZER INC-2013167706

PATIENT
  Age: 37 Year
  Sex: Female

DRUGS (7)
  1. PRISTIQ [Suspect]
     Dosage: UNK
  2. FLECTOR [Suspect]
     Dosage: UNK
  3. MIRTAZAPINE [Suspect]
     Dosage: UNK
  4. AMBIEN [Suspect]
     Dosage: UNK
  5. CYMBALTA [Suspect]
     Dosage: UNK
  6. LEXAPRO [Suspect]
     Dosage: UNK
  7. WELLBUTRIN [Suspect]
     Dosage: UNK

REACTIONS (1)
  - Drug hypersensitivity [Unknown]
